FAERS Safety Report 6501549-8 (Version None)
Quarter: 2009Q4

REPORT INFORMATION
  Report Type: 
  Country: None (occurrence: None)
  Receive Date: 20091216
  Receipt Date: 20091209
  Transmission Date: 20100525
  Serious: Yes (Hospitalization)
  Sender: FDA-Public Use
  Company Number: B0615500A

PATIENT
  Sex: Female
  Weight: 58.5 kg

DRUGS (11)
  1. WELLBUTRIN SR [Suspect]
     Indication: DEPRESSION
     Dosage: 150MG PER DAY
     Route: 048
     Dates: start: 20031105
  2. DOMPERIDONE [Concomitant]
     Dates: start: 20031105
  3. ROPINIROLE [Concomitant]
     Dates: start: 20031105
  4. GABAPENTIN [Concomitant]
     Dates: start: 20031105
  5. MIRTAZAPINE [Concomitant]
     Dates: start: 20031105
  6. MADOPAR [Concomitant]
     Dates: start: 20031105
  7. ZOLPIDEM [Concomitant]
     Dates: start: 20031210
  8. ROFECOXIB [Concomitant]
     Dates: start: 20031202, end: 20031228
  9. METOCLOPRAMIDE [Concomitant]
     Dates: start: 20031228, end: 20031228
  10. ACETAMINOPHEN [Concomitant]
     Dates: start: 20040102
  11. CEFACLOR [Concomitant]

REACTIONS (1)
  - PARKINSONISM [None]
